FAERS Safety Report 8037922-9 (Version None)
Quarter: 2012Q1

REPORT INFORMATION
  Report Type: 
  Country: None (occurrence: None)
  Receive Date: 20120111
  Receipt Date: 20120104
  Transmission Date: 20120608
  Serious: Yes (Death, Hospitalization)
  Sender: FDA-Public Use
  Company Number: FR-MILLENNIUM PHARMACEUTICALS, INC.-2011-00068

PATIENT

DRUGS (14)
  1. BENDAMUSTINE [Suspect]
     Indication: MULTIPLE MYELOMA
     Dosage: 136.25 MG, UNK
     Route: 042
     Dates: start: 20100512, end: 20110201
  2. ACUILIX                            /01133601/ [Concomitant]
     Indication: HYPERTENSION
     Dosage: 20 MG, UNK
     Route: 048
     Dates: end: 20101231
  3. GRANOCYTE                          /01003403/ [Concomitant]
     Indication: PROPHYLAXIS
     Dosage: UNK
     Route: 058
     Dates: start: 20100716
  4. ALLOPURINOL [Concomitant]
     Indication: HYPERURICAEMIA
     Dosage: 200 MG, UNK
     Route: 048
  5. MOPRAL                             /00661201/ [Concomitant]
     Indication: PROPHYLAXIS
     Dosage: 20 MG, UNK
     Route: 048
     Dates: start: 20100519
  6. DEXAMETHASONE TAB [Suspect]
     Indication: MULTIPLE MYELOMA
     Dosage: 20 MG, UNK
     Route: 048
     Dates: start: 20100512, end: 20110215
  7. MOVICOL                            /01053601/ [Concomitant]
     Indication: PROPHYLAXIS
     Dosage: UNK
     Route: 048
     Dates: start: 20100609, end: 20101231
  8. NEORECORMON [Concomitant]
     Indication: ANAEMIA
     Dosage: UNK
     Route: 058
     Dates: start: 20100512
  9. OMIX [Concomitant]
     Indication: PROSTATIC ADENOMA
     Dosage: 0.4 MG, UNK
     Route: 048
     Dates: end: 20101231
  10. ZELITREX                           /01269701/ [Concomitant]
     Indication: PROPHYLAXIS
     Dosage: 500 MG, UNK
     Route: 048
     Dates: start: 20100609
  11. ONDANSETRON [Concomitant]
     Indication: PROPHYLAXIS
     Dosage: 8 MG, UNK
     Route: 042
     Dates: start: 20100512
  12. DURAGESIC-100 [Concomitant]
     Dosage: UNK
     Route: 062
     Dates: start: 20101130, end: 20101231
  13. VELCADE [Suspect]
     Indication: MULTIPLE MYELOMA
     Dosage: 2.5 MG, UNK
     Route: 042
     Dates: start: 20100512, end: 20110215
  14. VASTAREL [Concomitant]
     Dosage: UNK
     Route: 048
     Dates: start: 20100613

REACTIONS (8)
  - HYPONATRAEMIA [None]
  - HYPERPROTEINAEMIA [None]
  - DISEASE PROGRESSION [None]
  - LUNG DISORDER [None]
  - NIGHT SWEATS [None]
  - CARDIOMEGALY [None]
  - MULTIPLE MYELOMA [None]
  - FEBRILE NEUTROPENIA [None]
